FAERS Safety Report 9761294 (Version 1)
Quarter: 2013Q4

REPORT INFORMATION
  Report Type: Spontaneous
  Country: US (occurrence: US)
  Receive Date: 20131216
  Receipt Date: 20131216
  Transmission Date: 20140711
  Serious: No
  Sender: FDA-Public Use
  Company Number: US-PFIZER INC-2013355995

PATIENT
  Age: 52 Year
  Sex: Male
  Weight: 73.47 kg

DRUGS (1)
  1. ADVIL [Suspect]
     Indication: PAIN
     Dosage: 400 MG, (BY TAKING 2 LIQUIGELS OF 200MG) AS NEEDED
     Route: 048
     Dates: end: 20131205

REACTIONS (8)
  - Extra dose administered [Unknown]
  - Hypersensitivity [Unknown]
  - Paraesthesia [Unknown]
  - Flushing [Unknown]
  - Erythema [Unknown]
  - Oesophageal disorder [Unknown]
  - Gastrooesophageal reflux disease [Unknown]
  - Discomfort [Unknown]
